FAERS Safety Report 9120914 (Version 2)
Quarter: 2013Q2

REPORT INFORMATION
  Report Type: Report from Study
  Country: BR (occurrence: BR)
  Receive Date: 20130226
  Receipt Date: 20130503
  Transmission Date: 20140414
  Serious: Yes (Other)
  Sender: FDA-Public Use
  Company Number: BR-ROCHE-1194855

PATIENT
  Sex: Female
  Weight: 58 kg

DRUGS (6)
  1. MABTHERA [Suspect]
     Indication: SJOGREN^S SYNDROME
     Route: 042
     Dates: start: 20110613
  2. MABTHERA [Suspect]
     Route: 065
  3. HIDRION [Concomitant]
  4. PURAN T4 [Concomitant]
  5. PROPRANOLOL [Concomitant]
  6. VICOG [Concomitant]

REACTIONS (1)
  - Retinal degeneration [Not Recovered/Not Resolved]
